FAERS Safety Report 10175920 (Version 2)
Quarter: 2014Q2

REPORT INFORMATION
  Report Type: Report from Study
  Country: SV (occurrence: SV)
  Receive Date: 20140516
  Receipt Date: 20140527
  Transmission Date: 20141212
  Serious: Yes (Death, Hospitalization, Other)
  Sender: FDA-Public Use
  Company Number: PHHY2014SV058864

PATIENT
  Age: 58 Year
  Sex: Male
  Weight: 68.27 kg

DRUGS (1)
  1. GLIVEC [Suspect]
     Indication: CHRONIC MYELOID LEUKAEMIA
     Dosage: 400 MG, QD
     Route: 048
     Dates: start: 20040616, end: 20140312

REACTIONS (4)
  - Cerebral haemorrhage [Fatal]
  - Chronic myeloid leukaemia transformation [Unknown]
  - Bone marrow failure [Unknown]
  - Drug resistance [Unknown]
